FAERS Safety Report 6195584-X (Version None)
Quarter: 2009Q2

REPORT INFORMATION
  Report Type: 
  Country: None (occurrence: None)
  Receive Date: 20090519
  Receipt Date: 20090515
  Transmission Date: 20091009
  Serious: Yes (Life-Threatening, Other)
  Sender: FDA-Public Use
  Company Number: PHHY2009BR18998

PATIENT
  Sex: Female

DRUGS (2)
  1. DIOVAN HCT [Suspect]
     Indication: HYPERTENSION
     Dosage: UNK
     Route: 048
     Dates: start: 20090511, end: 20090512
  2. PURAN T4 [Concomitant]
     Indication: HYPERTHYROIDISM
     Dosage: 1 TABLET DAILY
     Route: 048
     Dates: start: 20070501

REACTIONS (7)
  - APPARENT LIFE THREATENING EVENT [None]
  - BLOOD PRESSURE ABNORMAL [None]
  - BLOOD PRESSURE DECREASED [None]
  - COLD SWEAT [None]
  - CYANOSIS [None]
  - INCORRECT DOSE ADMINISTERED [None]
  - PALLOR [None]
